FAERS Safety Report 11919676 (Version 1)
Quarter: 2016Q1

REPORT INFORMATION
  Report Type: Spontaneous
  Country: US (occurrence: US)
  Receive Date: 20160115
  Receipt Date: 20160115
  Transmission Date: 20160526
  Serious: Yes (Other)
  Sender: FDA-Public Use
  Company Number: US-PFIZER INC-2016011775

PATIENT
  Age: 67 Year
  Sex: Male
  Weight: 93 kg

DRUGS (4)
  1. SYNTHROID [Concomitant]
     Active Substance: LEVOTHYROXINE SODIUM
     Indication: THYROID DISORDER
     Dosage: 0.2 MG, UNK
  2. COLACE [Concomitant]
     Active Substance: DOCUSATE SODIUM
     Indication: SURGERY
     Dosage: 100 MG, UNK
     Dates: start: 201601
  3. FLOMAX [Concomitant]
     Active Substance: TAMSULOSIN HYDROCHLORIDE
     Indication: SURGERY
     Dosage: 0.4 MG, UNK
     Dates: start: 201601
  4. VIAGRA [Suspect]
     Active Substance: SILDENAFIL CITRATE
     Indication: PENILE VASCULAR DISORDER
     Dosage: 50 MG, ALTERNATE DAY
     Dates: start: 201601, end: 20160106

REACTIONS (2)
  - Gout [Recovering/Resolving]
  - Product use issue [Recovered/Resolved]

NARRATIVE: CASE EVENT DATE: 201601
